FAERS Safety Report 18208338 (Version 1)
Quarter: 2020Q3

REPORT INFORMATION
  Report Type: Spontaneous
  Country: FR (occurrence: FR)
  Receive Date: 20200828
  Receipt Date: 20200828
  Transmission Date: 20201103
  Serious: Yes (Life-Threatening)
  Sender: FDA-Public Use
  Company Number: FR-MYLANLABS-2020M1073524

PATIENT
  Age: 70 Year
  Sex: Female
  Weight: 93 kg

DRUGS (10)
  1. PROPOFOL. [Suspect]
     Active Substance: PROPOFOL
     Indication: ANAESTHESIA
     Dosage: 200 MILLIGRAM
     Route: 040
  2. LIDOCAINE. [Suspect]
     Active Substance: LIDOCAINE
     Indication: ANAESTHESIA
     Dosage: 140 MILLIGRAM
     Route: 042
  3. TRAVOPROST. [Concomitant]
     Active Substance: TRAVOPROST
     Dosage: UNK
     Route: 047
  4. NEBIVOLOL. [Concomitant]
     Active Substance: NEBIVOLOL
     Dosage: 5 MG PAR JOUR
     Route: 048
  5. KETAMINE [Suspect]
     Active Substance: KETAMINE
     Indication: ANAESTHESIA
     Dosage: 25 MILLIGRAM
     Route: 040
  6. ESMERON [Suspect]
     Active Substance: ROCURONIUM BROMIDE
     Indication: ANAESTHESIA
     Dosage: 50 MILLIGRAM
     Route: 040
  7. LEVOTHYROXINE SODIQUE [Concomitant]
     Active Substance: LEVOTHYROXINE SODIUM
     Dosage: 125 MICROGRAMMES PAR JOUR
     Route: 048
  8. PROGLICEM [Concomitant]
     Active Substance: DIAZOXIDE
     Dosage: 250 MG PAR JOUR
     Route: 048
     Dates: start: 202004
  9. REMIFENTANIL [Suspect]
     Active Substance: REMIFENTANIL
     Indication: ANAESTHESIA
     Dosage: 125.05 MILLIGRAM
     Route: 042
  10. HYDROCHLOROTHIAZIDE. [Concomitant]
     Active Substance: HYDROCHLOROTHIAZIDE
     Dosage: 12,5 MG PAR JOUR
     Route: 048

REACTIONS (1)
  - Anaphylactoid shock [Recovered/Resolved]
